FAERS Safety Report 22942543 (Version 2)
Quarter: 2023Q4

REPORT INFORMATION
  Report Type: Spontaneous
  Country: JP (occurrence: JP)
  Receive Date: 20230914
  Receipt Date: 20231010
  Transmission Date: 20240109
  Serious: Yes (Other)
  Sender: FDA-Public Use
  Company Number: JP-ASTELLAS-2023JP010507

PATIENT
  Age: 3 Decade
  Sex: Male

DRUGS (3)
  1. PROGRAF [Suspect]
     Active Substance: TACROLIMUS
     Indication: Colitis ulcerative
     Dosage: 8 MG/DAY, UNKNOWN FREQ.
     Route: 048
     Dates: start: 20230830
  2. PROGRAF [Suspect]
     Active Substance: TACROLIMUS
     Dosage: 10 MG/DAY, UNKNOWN FREQ.
     Route: 048
     Dates: start: 20230902
  3. PROGRAF [Suspect]
     Active Substance: TACROLIMUS
     Dosage: 12 MG/DAY, UNKNOWN FREQ.
     Route: 048
     Dates: start: 202309, end: 20230922

REACTIONS (4)
  - Blood loss anaemia [Recovering/Resolving]
  - Hypoalbuminaemia [Recovering/Resolving]
  - Overdose [Unknown]
  - Therapeutic response decreased [Unknown]

NARRATIVE: CASE EVENT DATE: 20230830
